FAERS Safety Report 8344110-5 (Version None)
Quarter: 2012Q2

REPORT INFORMATION
  Report Type: 
  Country: None (occurrence: None)
  Receive Date: 20120508
  Receipt Date: 20100916
  Transmission Date: 20120825
  Serious: Yes (Life-Threatening, Hospitalization, Other)
  Sender: FDA-Public Use
  Company Number: CN-ALLERGAN-1017084US

PATIENT
  Age: 28 Year
  Sex: Female

DRUGS (2)
  1. BOTULINUM TOXIN TYPE A [Suspect]
     Indication: SKIN COSMETIC PROCEDURE
     Dosage: UNK
     Route: 030
     Dates: start: 20091125, end: 20091125
  2. BOTULINUM TOXIN TYPE A [Suspect]
     Dosage: UNK
     Route: 030
     Dates: start: 20091127, end: 20091127

REACTIONS (16)
  - FATIGUE [None]
  - MUSCULAR WEAKNESS [None]
  - SPEECH DISORDER [None]
  - CHEST DISCOMFORT [None]
  - RESPIRATORY FAILURE [None]
  - BOTULISM [None]
  - MOVEMENT DISORDER [None]
  - DYSPHAGIA [None]
  - ANOXIA [None]
  - DIZZINESS [None]
  - EYELID PTOSIS [None]
  - CYANOSIS [None]
  - DYSPNOEA [None]
  - LUNG INFECTION [None]
  - LETHARGY [None]
  - SUFFOCATION FEELING [None]
